FAERS Safety Report 25570176 (Version 1)
Quarter: 2025Q3

REPORT INFORMATION
  Report Type: Spontaneous
  Country: US (occurrence: US)
  Receive Date: 20250717
  Receipt Date: 20250717
  Transmission Date: 20251020
  Serious: No
  Sender: TEVA
  Company Number: US-TEVA-VS-3350410

PATIENT
  Age: 29 Year
  Sex: Female

DRUGS (4)
  1. PREDNISONE [Suspect]
     Active Substance: PREDNISONE
     Indication: Product used for unknown indication
     Route: 065
     Dates: start: 2024
  2. HYDROXYCHLOROQUINE [Suspect]
     Active Substance: HYDROXYCHLOROQUINE
     Indication: Product used for unknown indication
     Route: 065
     Dates: start: 2024
  3. MYFORTIC [Suspect]
     Active Substance: MYCOPHENOLATE SODIUM
     Indication: Product used for unknown indication
     Route: 065
     Dates: start: 2024
  4. LUPKYNIS [Suspect]
     Active Substance: VOCLOSPORIN
     Indication: Lupus nephritis
     Route: 048
     Dates: start: 20240709

REACTIONS (5)
  - Gastrointestinal disorder [Unknown]
  - Weight increased [Unknown]
  - Oedema peripheral [Unknown]
  - Blood albumin decreased [Unknown]
  - Proteinuria [Unknown]

NARRATIVE: CASE EVENT DATE: 20240101
